FAERS Safety Report 22297512 (Version 1)
Quarter: 2023Q2

REPORT INFORMATION
  Report Type: Spontaneous
  Country: TZ (occurrence: TZ)
  Receive Date: 20230509
  Receipt Date: 20230509
  Transmission Date: 20230721
  Serious: Yes (Death, Other)
  Sender: FDA-Public Use
  Company Number: TZ-SPC-000237

PATIENT
  Age: 62 Year
  Sex: Male

DRUGS (1)
  1. CLINDAMYCIN [Suspect]
     Active Substance: CLINDAMYCIN
     Indication: Pneumonia staphylococcal
     Route: 042

REACTIONS (2)
  - Drug ineffective for unapproved indication [Unknown]
  - Septic shock [Fatal]
